FAERS Safety Report 5330276-8 (Version None)
Quarter: 2007Q2

REPORT INFORMATION
  Report Type: 
  Country: None (occurrence: None)
  Receive Date: 20070521
  Receipt Date: 20070515
  Transmission Date: 20071010
  Serious: Yes (Other)
  Sender: FDA-Public Use
  Company Number: CN-ABBOTT-07P-035-0368251-00

PATIENT
  Age: 60 Year
  Sex: Male
  Weight: 61 kg

DRUGS (3)
  1. REMFENTANIL [Suspect]
     Indication: CHOLECYSTECTOMY
     Route: 008
  2. LIDOCAINE [Concomitant]
     Indication: CHOLECYSTECTOMY
     Route: 008
  3. EPINEPHRINE [Concomitant]
     Indication: CHOLECYSTECTOMY
     Dosage: 1:200,000, VIA THREE INJECTIONS OVER 10
     Route: 008

REACTIONS (4)
  - DRUG ADMINISTRATION ERROR [None]
  - LOSS OF CONSCIOUSNESS [None]
  - MUSCLE RIGIDITY [None]
  - RESPIRATORY DEPRESSION [None]
